FAERS Safety Report 10090014 (Version 1)
Quarter: 2014Q2

REPORT INFORMATION
  Report Type: Spontaneous
  Country: US (occurrence: US)
  Receive Date: 20140421
  Receipt Date: 20140421
  Transmission Date: 20141212
  Serious: No
  Sender: FDA-Public Use
  Company Number: US-TEVA-476035USA

PATIENT
  Sex: Male
  Weight: 69.92 kg

DRUGS (25)
  1. PROAIR HFA [Suspect]
     Indication: ASTHMA
     Dates: start: 2006
  2. PROAIR HFA [Interacting]
     Indication: EMPHYSEMA
  3. PROAIR HFA [Interacting]
     Indication: CHRONIC OBSTRUCTIVE PULMONARY DISEASE
  4. ADVAIR [Interacting]
     Indication: ASTHMA
  5. ADVAIR [Interacting]
     Indication: EMPHYSEMA
  6. ADVAIR [Interacting]
     Indication: CHRONIC OBSTRUCTIVE PULMONARY DISEASE
  7. RISPERDAL [Concomitant]
     Indication: MOOD SWINGS
     Dosage: 2 MILLIGRAM DAILY;
  8. RISPERDAL [Concomitant]
     Indication: SCHIZOPHRENIA
  9. RISPERDAL [Concomitant]
     Indication: BIPOLAR DISORDER
  10. DETROL [Concomitant]
     Indication: BLADDER DISORDER
  11. DETROL [Concomitant]
     Indication: PROSTATIC DISORDER
  12. SEROQUEL XR [Concomitant]
     Indication: SCHIZOPHRENIA
     Dosage: 400 MILLIGRAM DAILY; QHS
  13. SEROQUEL XR [Concomitant]
     Indication: BIPOLAR DISORDER
  14. SEROQUEL XR [Concomitant]
     Indication: MOOD SWINGS
  15. BUSPAR [Concomitant]
     Indication: BIPOLAR DISORDER
     Dosage: 10 MILLIGRAM DAILY;
  16. BUSPAR [Concomitant]
     Indication: MEMORY IMPAIRMENT
  17. AMMONIUM LACTATE [Concomitant]
     Indication: DRY SKIN
  18. AMMONIUM LACTATE [Concomitant]
     Indication: SKIN DISORDER
  19. VOLTAREN [Concomitant]
     Indication: ARTHRITIS
  20. LAMICTAL [Concomitant]
     Indication: BIPOLAR DISORDER
  21. LAMICTAL [Concomitant]
     Indication: SCHIZOPHRENIA
  22. LAMICTAL [Concomitant]
     Indication: MOOD SWINGS
  23. LAMICTAL [Concomitant]
     Indication: MEMORY IMPAIRMENT
  24. PRILOSEC [Concomitant]
     Indication: DYSPEPSIA
  25. OXYBUTYNIN [Concomitant]
     Dosage: 10 MILLIGRAM DAILY; QHS

REACTIONS (6)
  - Product taste abnormal [Not Recovered/Not Resolved]
  - Drug interaction [Unknown]
  - Mood swings [Unknown]
  - Fatigue [Unknown]
  - Memory impairment [Unknown]
  - Therapeutic response changed [Unknown]
